FAERS Safety Report 22391587 (Version 4)
Quarter: 2023Q4

REPORT INFORMATION
  Report Type: Spontaneous
  Country: CN (occurrence: CN)
  Receive Date: 20230601
  Receipt Date: 20231120
  Transmission Date: 20240110
  Serious: Yes (Death, Hospitalization, Disabling, Other)
  Sender: FDA-Public Use
  Company Number: CN-BRISTOL-MYERS SQUIBB COMPANY-2023-075045

PATIENT
  Age: 36 Year
  Sex: Female
  Weight: 59 kg

DRUGS (3)
  1. DASATINIB [Suspect]
     Active Substance: DASATINIB
     Indication: Chronic myeloid leukaemia
     Route: 048
     Dates: start: 20230418, end: 20230506
  2. HYDROXYUREA [Concomitant]
     Active Substance: HYDROXYUREA
     Indication: Product used for unknown indication
  3. IMATINIB [Concomitant]
     Active Substance: IMATINIB
     Indication: Product used for unknown indication

REACTIONS (2)
  - Pulmonary hypertension [Fatal]
  - Cardiac failure [Unknown]

NARRATIVE: CASE EVENT DATE: 20230506
